FAERS Safety Report 6968222-3 (Version None)
Quarter: 2010Q3

REPORT INFORMATION
  Report Type: 
  Country: None (occurrence: None)
  Receive Date: 20100907
  Receipt Date: 20100827
  Transmission Date: 20110219
  Serious: Yes (Hospitalization)
  Sender: FDA-Public Use
  Company Number: BR-ROCHE-694138

PATIENT
  Sex: Male
  Weight: 89 kg

DRUGS (11)
  1. TOCILIZUMAB [Suspect]
     Indication: RHEUMATOID ARTHRITIS
     Dosage: DOSAGE FORM: 8 MG/KG, LAST DOSE: 18 MARCH 2010, FORM: INFUSION
     Route: 042
     Dates: start: 20100119, end: 20100415
  2. METHOTREXATE [Suspect]
     Indication: RHEUMATOID ARTHRITIS
     Dosage: EVERY WEEK, LAST DOSE: 25 MARCH 2010
     Route: 048
     Dates: start: 20100119, end: 20100415
  3. PREDNISONE [Suspect]
     Indication: PRODUCT USED FOR UNKNOWN INDICATION
     Dosage: TOTAL DAILY DOSE 10
     Route: 065
     Dates: start: 20091223
  4. ENALAPRIL [Concomitant]
     Dates: end: 20100326
  5. OMEPRAZOLE [Concomitant]
  6. SERTRALINE HYDROCHLORIDE [Concomitant]
  7. DIAZEPAM [Concomitant]
  8. MELOXICAM [Concomitant]
     Dates: end: 20100407
  9. FUROSEMIDE [Concomitant]
  10. FOLIC ACID [Concomitant]
  11. DIPYRONE [Concomitant]

REACTIONS (1)
  - PHLEBITIS [None]
